FAERS Safety Report 8212084-3 (Version None)
Quarter: 2012Q1

REPORT INFORMATION
  Report Type: 
  Country: None (occurrence: None)
  Receive Date: 20120315
  Receipt Date: 20120309
  Transmission Date: 20120608
  Serious: Yes (Hospitalization)
  Sender: FDA-Public Use
  Company Number: PHHY2011US27259

PATIENT
  Sex: Female
  Weight: 62.585 kg

DRUGS (1)
  1. EXJADE [Suspect]
     Indication: NEOPLASM
     Dosage: 2500 MG, QD
     Route: 048
     Dates: start: 20080328

REACTIONS (3)
  - DIARRHOEA [None]
  - OTITIS MEDIA [None]
  - CHOLELITHIASIS [None]
